FAERS Safety Report 19111850 (Version 1)
Quarter: 2021Q2

REPORT INFORMATION
  Report Type: Spontaneous
  Country: AU (occurrence: AU)
  Receive Date: 20210408
  Receipt Date: 20210408
  Transmission Date: 20210717
  Serious: Yes (Other)
  Sender: FDA-Public Use
  Company Number: AU-PURDUE-USA-2021-0242317

PATIENT
  Age: 1 Year
  Sex: Male
  Weight: 10 kg

DRUGS (12)
  1. NON?PMN MORPHINE SULFATE [Suspect]
     Active Substance: MORPHINE SULFATE
     Dosage: 10 MCG/KG, SINGLE (1 ML)
  2. FENTANYL. [Suspect]
     Active Substance: FENTANYL
     Indication: PRODUCT USED FOR UNKNOWN INDICATION
     Dosage: 5 MCG, SINGLE
     Route: 042
  3. FENTANYL. [Suspect]
     Active Substance: FENTANYL
     Dosage: 75 MCG, SINGLE
     Route: 042
  4. TRAMADOL. [Suspect]
     Active Substance: TRAMADOL
     Indication: PRODUCT USED FOR UNKNOWN INDICATION
     Dosage: 20 MG, UNK (2 MG/KG)
     Route: 042
  5. NON?PMN MORPHINE SULFATE [Suspect]
     Active Substance: MORPHINE SULFATE
     Dosage: 10 MCG/KG, Q1H
     Route: 041
  6. PARACETAMOL [Suspect]
     Active Substance: ACETAMINOPHEN
     Indication: PAIN
     Dosage: UNK
     Route: 042
  7. NON?PMN MORPHINE SULFATE [Suspect]
     Active Substance: MORPHINE SULFATE
     Dosage: 20 MCG/KG, Q1H
     Route: 041
  8. NON?PMN MORPHINE SULFATE [Suspect]
     Active Substance: MORPHINE SULFATE
     Dosage: UNK (THREE BOLUSES)
     Route: 040
  9. CIPROFLOXACIN. [Concomitant]
     Active Substance: CIPROFLOXACIN
  10. CEFAZOLIN [Concomitant]
     Active Substance: CEFAZOLIN
     Dosage: 250 MG, TWICE
  11. NON?PMN MORPHINE SULFATE [Suspect]
     Active Substance: MORPHINE SULFATE
     Indication: PAIN
     Dosage: 20 MCG/KG, SINGLE
     Route: 040
  12. NON?PMN MORPHINE SULFATE [Suspect]
     Active Substance: MORPHINE SULFATE
     Dosage: 20 MCG/KG, Q1H
     Route: 041

REACTIONS (11)
  - Lung disorder [Unknown]
  - Respiratory acidosis [Unknown]
  - Sedation complication [Recovered/Resolved]
  - Stridor [Unknown]
  - Upper airway obstruction [Unknown]
  - Breath holding [Unknown]
  - Aspiration [Unknown]
  - Metabolic acidosis [Unknown]
  - Oxygen saturation decreased [Recovering/Resolving]
  - Dyspnoea [Not Recovered/Not Resolved]
  - Incorrect product administration duration [Recovered/Resolved]
